FAERS Safety Report 14455509 (Version 6)
Quarter: 2018Q4

REPORT INFORMATION
  Report Type: Report from Study
  Country: JP (occurrence: JP)
  Receive Date: 20180129
  Receipt Date: 20181114
  Transmission Date: 20190204
  Serious: Yes (Hospitalization)
  Sender: FDA-Public Use
  Company Number: JP-BIOGEN-2018BI00515452

PATIENT
  Age: 33 Year
  Sex: Male
  Weight: 43 kg

DRUGS (6)
  1. SPINRAZA [Suspect]
     Active Substance: NUSINERSEN
     Route: 037
     Dates: start: 20180417, end: 20180417
  2. SPINRAZA [Suspect]
     Active Substance: NUSINERSEN
     Indication: SPINAL MUSCULAR ATROPHY
     Route: 037
     Dates: start: 20180123, end: 20180123
  3. SPINRAZA [Suspect]
     Active Substance: NUSINERSEN
     Route: 037
     Dates: start: 20180220, end: 20180220
  4. PENLES [Concomitant]
     Active Substance: LIDOCAINE
     Indication: ANAESTHESIA PROCEDURE
     Route: 062
     Dates: start: 20180123, end: 20180123
  5. PENLES [Concomitant]
     Active Substance: LIDOCAINE
     Route: 062
     Dates: start: 20180417, end: 20180417
  6. PENLES [Concomitant]
     Active Substance: LIDOCAINE
     Route: 062
     Dates: start: 20180220, end: 20180220

REACTIONS (4)
  - Nausea [Recovered/Resolved]
  - Headache [Recovered/Resolved]
  - Subdural haematoma [Recovered/Resolved]
  - Tinnitus [Recovered/Resolved]

NARRATIVE: CASE EVENT DATE: 20180123
